APPROVED DRUG PRODUCT: HYDROCODONE BITARTRATE AND ACETAMINOPHEN
Active Ingredient: ACETAMINOPHEN; HYDROCODONE BITARTRATE
Strength: 500MG;5MG
Dosage Form/Route: CAPSULE;ORAL
Application: A089008 | Product #001
Applicant: MIKART LLC
Approved: Feb 21, 1986 | RLD: No | RS: No | Type: DISCN